FAERS Safety Report 24087340 (Version 2)
Quarter: 2024Q3

REPORT INFORMATION
  Report Type: Spontaneous
  Country: FR (occurrence: FR)
  Receive Date: 20240714
  Receipt Date: 20240716
  Transmission Date: 20241016
  Serious: Yes (Hospitalization, Other)
  Sender: SANOFI AVENTIS
  Company Number: None

PATIENT
  Age: 65 Year
  Sex: Male

DRUGS (11)
  1. LOVENOX [Suspect]
     Active Substance: ENOXAPARIN SODIUM
     Indication: Cardiovascular event prophylaxis
     Dosage: 1 DF, QD
     Route: 058
     Dates: start: 20240505, end: 20240612
  2. TAMSULOSIN HYDROCHLORIDE [Suspect]
     Active Substance: TAMSULOSIN HYDROCHLORIDE
     Indication: Nephrostomy
     Dosage: 0.4 MG, QD
     Route: 048
     Dates: start: 20240506
  3. FUROSEMIDE [Suspect]
     Active Substance: FUROSEMIDE
     Indication: Hypertension
     Dosage: 80 MG, QD
     Route: 048
     Dates: start: 20240508, end: 20240612
  4. NICOTINAMIDE [Suspect]
     Active Substance: NIACINAMIDE
     Indication: Vitamin supplementation
     Dosage: 2 DF, QD
     Route: 048
     Dates: start: 20240513, end: 20240612
  5. PREGABALIN [Suspect]
     Active Substance: PREGABALIN
     Indication: Neuralgia
     Dosage: 150 MG, QD
     Route: 048
     Dates: start: 20240603, end: 20240611
  6. PREGABALIN [Suspect]
     Active Substance: PREGABALIN
     Dosage: 225 MG, QD
     Route: 048
     Dates: start: 20240612, end: 20240613
  7. THIAMINE HYDROCHLORIDE [Suspect]
     Active Substance: THIAMINE HYDROCHLORIDE
     Indication: Vitamin supplementation
     Dosage: 6 DF, QD
     Route: 048
     Dates: start: 20240611, end: 20240613
  8. ZINC GLUCONATE [Suspect]
     Active Substance: ZINC GLUCONATE
     Indication: Mineral supplementation
     Dosage: 2 DF, QD
     Route: 048
     Dates: start: 20240516, end: 20240613
  9. IOHEXOL [Suspect]
     Active Substance: IOHEXOL
     Indication: Angiogram
     Dosage: 115 ML, TOTAL
     Route: 042
     Dates: start: 20240611, end: 20240611
  10. MAGNESIUM PIDOLATE [Suspect]
     Active Substance: MAGNESIUM PIDOLATE
     Indication: Hypomagnesaemia
     Dosage: 2 DF, QD
     Route: 048
     Dates: start: 20240509, end: 20240512
  11. MAGNESIUM PIDOLATE [Suspect]
     Active Substance: MAGNESIUM PIDOLATE
     Dosage: 2 DF, QD
     Route: 048
     Dates: start: 20240517, end: 20240613

REACTIONS (3)
  - Dermatitis exfoliative generalised [Recovered/Resolved]
  - Eosinophilia [Recovered/Resolved]
  - Off label use [Unknown]

NARRATIVE: CASE EVENT DATE: 20240506
